FAERS Safety Report 13824781 (Version 1)
Quarter: 2017Q3

REPORT INFORMATION
  Report Type: Spontaneous
  Country: MY (occurrence: MY)
  Receive Date: 20170802
  Receipt Date: 20170802
  Transmission Date: 20171127
  Serious: Yes (Other)
  Sender: FDA-Public Use
  Company Number: MY-ABBVIE-17P-101-2058912-00

PATIENT

DRUGS (1)
  1. EPILIM [Suspect]
     Active Substance: VALPROATE SODIUM
     Indication: PRODUCT USED FOR UNKNOWN INDICATION
     Dosage: UNKNOWN DAILY DOSE
     Route: 065

REACTIONS (5)
  - Fatigue [Unknown]
  - Somnolence [Unknown]
  - Product odour abnormal [Unknown]
  - Epilepsy [Unknown]
  - Diarrhoea [Unknown]
